FAERS Safety Report 6408519-9 (Version None)
Quarter: 2009Q4

REPORT INFORMATION
  Report Type: 
  Country: None (occurrence: None)
  Receive Date: 20091019
  Receipt Date: 20090916
  Transmission Date: 20100525
  Serious: Yes (Hospitalization)
  Sender: FDA-Public Use
  Company Number: 2009-00008

PATIENT
  Age: 61 Year
  Weight: 41.2773 kg

DRUGS (2)
  1. AVEENO +AGELESS DAILY MOIST SPF30 (3%AVOBENZONE, 12% HOMOSALATE,5%OCTI [Suspect]
     Indication: PROPHYLAXIS AGAINST SOLAR RADIATION
     Dosage: TOPICAL
     Route: 061
     Dates: start: 20090907, end: 20090916
  2. ALBUTEROL NEBULIZER Q.I.D. [Concomitant]

REACTIONS (2)
  - DYSPNOEA [None]
  - WHEEZING [None]
